FAERS Safety Report 18654382 (Version 1)
Quarter: 2020Q4

REPORT INFORMATION
  Report Type: Spontaneous
  Country: US (occurrence: US)
  Receive Date: 20201223
  Receipt Date: 20201223
  Transmission Date: 20210114
  Serious: No
  Sender: FDA-Public Use
  Company Number: None

PATIENT
  Age: 77 Year
  Sex: Female
  Weight: 45 kg

DRUGS (13)
  1. ONDANSETRON 8MG [Concomitant]
     Active Substance: ONDANSETRON
  2. ROSUVASTATIN 10MG [Concomitant]
     Active Substance: ROSUVASTATIN
  3. SERTRALINE 50MG [Concomitant]
     Active Substance: SERTRALINE HYDROCHLORIDE
  4. SYNTHROID [Concomitant]
     Active Substance: LEVOTHYROXINE SODIUM
  5. TEMAZEPAM 30MG [Concomitant]
     Active Substance: TEMAZEPAM
  6. TYLENOL [Concomitant]
     Active Substance: ACETAMINOPHEN
  7. LOPERAMIDE 2MG [Concomitant]
     Active Substance: LOPERAMIDE
  8. AMLODIPINE [Concomitant]
     Active Substance: AMLODIPINE BESYLATE
  9. CAPECITABINE. [Suspect]
     Active Substance: CAPECITABINE
     Indication: BREAST CANCER FEMALE
     Route: 048
     Dates: start: 20201009
  10. LOSARTAN 100MG [Concomitant]
     Active Substance: LOSARTAN
  11. CELECOXIB 100MG [Concomitant]
     Active Substance: CELECOXIB
  12. ENSURE POWDER [Concomitant]
  13. DICLOFENAC 3% [Concomitant]

REACTIONS (1)
  - Asthenia [None]

NARRATIVE: CASE EVENT DATE: 20201223
